FAERS Safety Report 11641532 (Version 1)
Quarter: 2015Q4

REPORT INFORMATION
  Report Type: Spontaneous
  Country: US (occurrence: US)
  Receive Date: 20151019
  Receipt Date: 20151019
  Transmission Date: 20160304
  Serious: Yes (Other)
  Sender: FDA-Public Use
  Company Number: US-US WORLDMEDS, LLC-USW201510-000279

PATIENT
  Age: 87 Year
  Sex: Male
  Weight: 61.24 kg

DRUGS (3)
  1. TAMSULOSIN [Concomitant]
     Active Substance: TAMSULOSIN
     Indication: PROSTATOMEGALY
  2. FINASTERIDE. [Concomitant]
     Active Substance: FINASTERIDE
     Indication: PROSTATOMEGALY
  3. MYOBLOC [Suspect]
     Active Substance: RIMABOTULINUMTOXINB
     Indication: SALIVARY HYPERSECRETION
     Dates: start: 20140611

REACTIONS (5)
  - Dizziness [Unknown]
  - Off label use [Unknown]
  - Asthenia [Unknown]
  - Urinary retention [Not Recovered/Not Resolved]
  - Diplopia [Unknown]

NARRATIVE: CASE EVENT DATE: 20140611
